FAERS Safety Report 20512016 (Version 6)
Quarter: 2022Q3

REPORT INFORMATION
  Report Type: Spontaneous
  Country: JP (occurrence: JP)
  Receive Date: 20220224
  Receipt Date: 20220715
  Transmission Date: 20221026
  Serious: Yes (Death, Other)
  Sender: FDA-Public Use
  Company Number: JP-GLAXOSMITHKLINE-JP2022JPN030730

PATIENT

DRUGS (5)
  1. SOTROVIMAB [Suspect]
     Active Substance: SOTROVIMAB
     Indication: COVID-19
     Dosage: 500 MG/100 ML/30 MIN, QD
     Dates: start: 20220215, end: 20220215
  2. ARTFED [Concomitant]
     Indication: Duodenal ulcer
     Dosage: 500 ML, BID, SINGLE FLUID ADMINISTRATION
     Dates: start: 20220215
  3. NACL 10% [Concomitant]
     Dosage: 20 ML, BID
     Dates: start: 20220215
  4. LANSOPRAZOLE [Concomitant]
     Active Substance: LANSOPRAZOLE
     Indication: Duodenal ulcer
     Dosage: 15 MG, QD
     Dates: start: 20220215
  5. MAGNESIUM OXIDE [Concomitant]
     Active Substance: MAGNESIUM OXIDE
     Dosage: 500 MG, BID
     Dates: start: 20220215

REACTIONS (3)
  - Depressed level of consciousness [Fatal]
  - Cyanosis [Unknown]
  - Drug ineffective [Unknown]

NARRATIVE: CASE EVENT DATE: 20220215
